FAERS Safety Report 22297949 (Version 1)
Quarter: 2023Q2

REPORT INFORMATION
  Report Type: Report from Study
  Country: US (occurrence: None)
  Receive Date: 20230509
  Receipt Date: 20230509
  Transmission Date: 20230722
  Serious: Yes (Hospitalization, Other)
  Sender: FDA-Public Use
  Company Number: 2023A106701

PATIENT
  Sex: Female
  Weight: 48.7 kg

DRUGS (1)
  1. TAGRISSO [Suspect]
     Active Substance: OSIMERTINIB
     Indication: Lung carcinoma cell type unspecified stage 0
     Route: 048
     Dates: start: 20230316

REACTIONS (3)
  - Blood sodium decreased [Unknown]
  - Oxygen therapy [Unknown]
  - Product dose omission issue [Unknown]
